FAERS Safety Report 13631989 (Version 1)
Quarter: 2017Q2

REPORT INFORMATION
  Report Type: Spontaneous
  Country: US (occurrence: US)
  Receive Date: 20170531
  Receipt Date: 20170531
  Transmission Date: 20170830
  Serious: No
  Sender: FDA-Public Use
  Company Number: US-ASTELLAS-1431167

PATIENT
  Age: 51 Year
  Sex: Female

DRUGS (1)
  1. TARCEVA [Suspect]
     Active Substance: ERLOTINIB HYDROCHLORIDE
     Indication: LUNG NEOPLASM
     Route: 065
     Dates: start: 20140319

REACTIONS (5)
  - Upper-airway cough syndrome [Unknown]
  - Palmar-plantar erythrodysaesthesia syndrome [Unknown]
  - Cough [Unknown]
  - Dry skin [Unknown]
  - Muscle spasms [Unknown]

NARRATIVE: CASE EVENT DATE: 20140421
